FAERS Safety Report 24532027 (Version 5)
Quarter: 2024Q4

REPORT INFORMATION
  Report Type: Report from Study
  Country: US (occurrence: US)
  Receive Date: 20241022
  Receipt Date: 20241210
  Transmission Date: 20250114
  Serious: No
  Sender: MERCK
  Company Number: US-009507513-2409USA009943

PATIENT
  Sex: Female
  Weight: 69.85 kg

DRUGS (13)
  1. SOTATERCEPT [Suspect]
     Active Substance: SOTATERCEPT
     Indication: Pulmonary arterial hypertension
     Dosage: 0.4 MILLILITER, Q3W
     Route: 058
     Dates: start: 20240626, end: 2024
  2. SOTATERCEPT [Suspect]
     Active Substance: SOTATERCEPT
     Dosage: LOWERED HER WINREVAIR TO 45
     Dates: start: 2024, end: 2024
  3. REMODULIN [Suspect]
     Active Substance: TREPROSTINIL
     Indication: Pulmonary arterial hypertension
     Dosage: UNK
     Route: 065
     Dates: start: 20240319
  4. REMODULIN [Suspect]
     Active Substance: TREPROSTINIL
     Dosage: 0.080 MICROGRAM PER KILOGRAM, CONTINUING
     Route: 041
     Dates: start: 2024
  5. LOVENOX [Suspect]
     Active Substance: ENOXAPARIN SODIUM
     Indication: Cerebrovascular accident
     Dosage: UNK
     Route: 065
  6. AMBRISENTAN [Concomitant]
     Active Substance: AMBRISENTAN
  7. LIPITOR [Concomitant]
     Active Substance: ATORVASTATIN CALCIUM
  8. REVATIO [Concomitant]
     Active Substance: SILDENAFIL CITRATE
  9. OXYGEN [Concomitant]
     Active Substance: OXYGEN
  10. FISH OIL [Concomitant]
     Active Substance: FISH OIL
  11. SPIRONOLACTONE [Concomitant]
     Active Substance: SPIRONOLACTONE
  12. BUMETANIDE [Concomitant]
     Active Substance: BUMETANIDE
  13. MESALAMINE [Concomitant]
     Active Substance: MESALAMINE
     Dosage: UNK

REACTIONS (5)
  - Haemoglobin increased [Not Recovered/Not Resolved]
  - Red blood cell count increased [Not Recovered/Not Resolved]
  - Haematocrit increased [Not Recovered/Not Resolved]
  - Oxygen saturation decreased [Unknown]
  - Swelling [Not Recovered/Not Resolved]

NARRATIVE: CASE EVENT DATE: 20240101
